FAERS Safety Report 23341886 (Version 1)
Quarter: 2023Q4

REPORT INFORMATION
  Report Type: Spontaneous
  Country: US (occurrence: None)
  Receive Date: 20231226
  Receipt Date: 20231226
  Transmission Date: 20240110
  Serious: No
  Sender: FDA-Public Use
  Company Number: None

PATIENT
  Sex: Female

DRUGS (9)
  1. HUMIRA [Suspect]
     Active Substance: ADALIMUMAB
     Indication: Rheumatoid arthritis
     Dosage: OTHER FREQUENCY : EVERY14DAYS;?
     Route: 058
     Dates: start: 201912
  2. OLOPATADINE [Concomitant]
  3. ALBUTEROL [Concomitant]
  4. CLONAZEPAM [Concomitant]
  5. FOLIC ACID [Concomitant]
  6. DULOXETINE [Concomitant]
  7. AMOXICILLIN/CLAVULANATE [Concomitant]
  8. FLUTICASONE [Concomitant]
  9. HYDROXYCHLOROQUINE [Concomitant]

REACTIONS (1)
  - Drug ineffective [None]
